FAERS Safety Report 12296076 (Version 2)
Quarter: 2016Q2

REPORT INFORMATION
  Report Type: Spontaneous
  Country: US (occurrence: US)
  Receive Date: 20160422
  Receipt Date: 20160429
  Transmission Date: 20160815
  Serious: Yes (Hospitalization)
  Sender: FDA-Public Use
  Company Number: US-AMGEN-USASP2016047873

PATIENT
  Age: 96 Year
  Sex: Female

DRUGS (1)
  1. IMLYGIC [Suspect]
     Active Substance: TALIMOGENE LAHERPAREPVEC
     Indication: PRODUCT USED FOR UNKNOWN INDICATION
     Dosage: UNK UNK, UNK
     Route: 065

REACTIONS (7)
  - Vomiting [Unknown]
  - Chills [Unknown]
  - Nausea [Unknown]
  - Blood creatinine increased [Unknown]
  - Influenza like illness [Unknown]
  - Blood lactic acid increased [Unknown]
  - Pyrexia [Unknown]
